FAERS Safety Report 15881225 (Version 1)
Quarter: 2019Q1

REPORT INFORMATION
  Report Type: Other
  Country: US (occurrence: US)
  Receive Date: 20190128
  Receipt Date: 20190128
  Transmission Date: 20190417
  Serious: Yes (Death)
  Sender: FDA-Public Use
  Company Number: US-GENUS_LIFESCIENCES-USA-POI0580201900093

PATIENT
  Age: 25 Year
  Sex: Female

DRUGS (13)
  1. SERTRALINE [Suspect]
     Active Substance: SERTRALINE HYDROCHLORIDE
     Indication: PRODUCT USED FOR UNKNOWN INDICATION
     Dates: end: 2017
  2. LITHIUM. [Suspect]
     Active Substance: LITHIUM
     Indication: PRODUCT USED FOR UNKNOWN INDICATION
     Dates: end: 2017
  3. OLANZAPINE. [Suspect]
     Active Substance: OLANZAPINE
     Indication: PRODUCT USED FOR UNKNOWN INDICATION
     Dates: end: 2017
  4. ACETAMINOPHEN WITH SALICYLATE [Suspect]
     Active Substance: ACETAMINOPHEN\SALICYLIC ACID
     Indication: PRODUCT USED FOR UNKNOWN INDICATION
     Dates: end: 2017
  5. OXYCODONE HCL CAPSULES [Suspect]
     Active Substance: OXYCODONE HYDROCHLORIDE
     Indication: PRODUCT USED FOR UNKNOWN INDICATION
     Dates: end: 2017
  6. TRAZODONE [Suspect]
     Active Substance: TRAZODONE HYDROCHLORIDE
     Indication: PRODUCT USED FOR UNKNOWN INDICATION
     Dates: end: 2017
  7. FOOD COLORING [Suspect]
     Active Substance: UNSPECIFIED INGREDIENT
     Indication: PRODUCT USED FOR UNKNOWN INDICATION
     Dates: end: 2017
  8. ANTIHISTAMINE [Suspect]
     Active Substance: ANTIHISTAMINES NOS
  9. ACETAMINOPHEN\DEXTROMETHORPHAN [Suspect]
     Active Substance: ACETAMINOPHEN\DEXTROMETHORPHAN
     Indication: PRODUCT USED FOR UNKNOWN INDICATION
  10. DECONGESTANT [Suspect]
     Active Substance: UNSPECIFIED INGREDIENT
  11. ONDANSETRON [Suspect]
     Active Substance: ONDANSETRON
     Indication: PRODUCT USED FOR UNKNOWN INDICATION
     Dates: end: 2017
  12. AMPHETAMINE WITH DEXTROAMPHETAMINE [Suspect]
     Active Substance: AMPHETAMINE\DEXTROAMPHETAMINE
     Indication: PRODUCT USED FOR UNKNOWN INDICATION
     Dates: end: 2017
  13. IBUPROFEN. [Suspect]
     Active Substance: IBUPROFEN
     Indication: PRODUCT USED FOR UNKNOWN INDICATION
     Dates: end: 2017

REACTIONS (3)
  - Cardiac arrest [Fatal]
  - Respiratory arrest [Fatal]
  - Completed suicide [Fatal]

NARRATIVE: CASE EVENT DATE: 2017
